FAERS Safety Report 23089051 (Version 4)
Quarter: 2023Q4

REPORT INFORMATION
  Report Type: Spontaneous
  Country: US (occurrence: US)
  Receive Date: 20231020
  Receipt Date: 20231130
  Transmission Date: 20240110
  Serious: Yes (Other)
  Sender: FDA-Public Use
  Company Number: US-PFIZER INC-PV202300173820

PATIENT
  Age: 77 Year
  Sex: Female

DRUGS (1)
  1. IBRANCE [Suspect]
     Active Substance: PALBOCICLIB
     Dosage: 75 MG, CYCLIC (TAKE 1 TAB EVERY MORNING WITH BREAKFAST X 21 DAYS/ 7 DAYS OFF)
     Route: 048

REACTIONS (4)
  - Cerebrovascular accident [Recovering/Resolving]
  - Neoplasm malignant [Unknown]
  - Speech disorder [Not Recovered/Not Resolved]
  - Anxiety [Unknown]
